FAERS Safety Report 7380252-9 (Version None)
Quarter: 2011Q1

REPORT INFORMATION
  Report Type: 
  Country: None (occurrence: None)
  Receive Date: 20110318
  Receipt Date: 20110309
  Transmission Date: 20110831
  Serious: Yes (Hospitalization)
  Sender: FDA-Public Use
  Company Number: 028937

PATIENT
  Sex: Female
  Weight: 60 kg

DRUGS (4)
  1. KEPPRA [Concomitant]
  2. LACOSAMIDE (VIMPAT) [Suspect]
     Indication: EPILEPSY
     Dosage: (400 MG ORAL), (300 MG, DOSE DECREASED ORAL)
     Route: 048
     Dates: start: 20100105, end: 20100210
  3. LACOSAMIDE (VIMPAT) [Suspect]
     Indication: EPILEPSY
     Dosage: (400 MG ORAL), (300 MG, DOSE DECREASED ORAL)
     Route: 048
     Dates: start: 20100211
  4. PHENYTOIN [Concomitant]

REACTIONS (4)
  - PARTIAL SEIZURES [None]
  - DIPLOPIA [None]
  - VERTIGO [None]
  - COMPLEX PARTIAL SEIZURES [None]
